FAERS Safety Report 8988040 (Version 3)
Quarter: 2013Q1

REPORT INFORMATION
  Report Type: Spontaneous
  Country: ES (occurrence: ES)
  Receive Date: 20121227
  Receipt Date: 20130125
  Transmission Date: 20140127
  Serious: Yes (Other)
  Sender: FDA-Public Use
  Company Number: ES-PFIZER INC-2012330673

PATIENT
  Age: 35 Year
  Sex: Male

DRUGS (2)
  1. LYRICA [Suspect]
     Dosage: 75 MG 3X/DAY+150MG 1X/DAY
  2. LYRICA [Suspect]
     Dosage: 75 MG IN THE MORNING+150MG AT NIGHT

REACTIONS (1)
  - Grand mal convulsion [Recovered/Resolved]
